FAERS Safety Report 14934312 (Version 1)
Quarter: 2018Q2

REPORT INFORMATION
  Report Type: Spontaneous
  Country: US (occurrence: US)
  Receive Date: 20180524
  Receipt Date: 20180524
  Transmission Date: 20180711
  Serious: Yes (Other)
  Sender: FDA-Public Use
  Company Number: US-LPDUSPRD-20180856

PATIENT
  Age: 18 Year
  Sex: Female

DRUGS (2)
  1. TECHNETIUM 99M [99M TC-LABELED MERTIATIDE] [Concomitant]
     Dosage: 10 MCI (370 MBQ)
     Route: 051
  2. FUROSEMIDE INJECTION, USP (5702-25) [Suspect]
     Active Substance: FUROSEMIDE
     Dosage: 21.6 MG
     Route: 042

REACTIONS (2)
  - Dehydration [Unknown]
  - Syncope [Unknown]
